FAERS Safety Report 11117330 (Version 2)
Quarter: 2015Q3

REPORT INFORMATION
  Report Type: Report from Study
  Country: US (occurrence: US)
  Receive Date: 20150515
  Receipt Date: 20150702
  Transmission Date: 20151125
  Serious: Yes (Hospitalization)
  Sender: FDA-Public Use
  Company Number: PHHO2014US015989

PATIENT
  Age: 58 Year
  Sex: Male
  Weight: 82.4 kg

DRUGS (10)
  1. CERTICAN [Suspect]
     Active Substance: EVEROLIMUS
     Indication: RENAL TRANSPLANT
     Dosage: 2.25 MG, BID
     Route: 048
     Dates: start: 20141106, end: 20141223
  2. TACROLIMUS. [Concomitant]
     Active Substance: TACROLIMUS
     Dosage: 7 MG, QD (3 MG  IN AM AND 4 MG IN PM)
     Route: 048
     Dates: start: 20141207, end: 20141223
  3. NIFEDIPINE. [Concomitant]
     Active Substance: NIFEDIPINE
     Indication: HYPERTENSION
     Dosage: 30 MG, QD
     Route: 048
     Dates: start: 20141111
  4. ACETYLSALICYLIC ACID [Concomitant]
     Active Substance: ASPIRIN
     Indication: THROMBOSIS PROPHYLAXIS
     Dosage: 81 MG, QD
     Route: 048
     Dates: start: 20141107
  5. ATORVASTATIN [Concomitant]
     Active Substance: ATORVASTATIN
     Indication: PROPHYLAXIS
     Dosage: 80 MG, QD
     Route: 048
     Dates: start: 20141106
  6. SULFAMETHOXAZOLE AND TRIMETHOPRIM [Concomitant]
     Active Substance: SULFAMETHOXAZOLE\TRIMETHOPRIM
     Indication: PROPHYLAXIS
     Dosage: 160 MG, QD
     Route: 048
     Dates: start: 20141105
  7. PREDNISONE. [Concomitant]
     Active Substance: PREDNISONE
     Dosage: 10 MG, QD
     Route: 048
     Dates: start: 20141221, end: 20141223
  8. PREDNISONE. [Concomitant]
     Active Substance: PREDNISONE
     Indication: RENAL TRANSPLANT
     Dosage: 25 MG, QD
     Route: 048
     Dates: start: 20141117, end: 20141202
  9. TACROLIMUS. [Concomitant]
     Active Substance: TACROLIMUS
     Indication: RENAL TRANSPLANT
     Dosage: 4 MG, BID
     Route: 048
     Dates: start: 20141125
  10. METOPROLOL TARTRATE. [Concomitant]
     Active Substance: METOPROLOL TARTRATE
     Indication: OEDEMA
     Dosage: 25 MG, BID
     Route: 048
     Dates: start: 20141111

REACTIONS (2)
  - Coronary artery disease [Not Recovered/Not Resolved]
  - Deep vein thrombosis [Recovered/Resolved]

NARRATIVE: CASE EVENT DATE: 20141201
